FAERS Safety Report 25451865 (Version 1)
Quarter: 2025Q2

REPORT INFORMATION
  Report Type: Spontaneous
  Country: US (occurrence: None)
  Receive Date: 20250617
  Receipt Date: 20250617
  Transmission Date: 20250716
  Serious: Yes (Hospitalization)
  Sender: FDA-CTU
  Company Number: None

PATIENT
  Age: 65 Year
  Sex: Male

DRUGS (22)
  1. TACROLIMUS [Suspect]
     Active Substance: TACROLIMUS
     Indication: Lung transplant
     Dosage: FREQUENCY : TWICE A DAY;?
     Route: 048
  2. MYCOPHENOLIC ACID [Suspect]
     Active Substance: MYCOPHENOLIC ACID
     Indication: Lung transplant
     Dosage: FREQUENCY : TWICE A DAY;?
     Route: 048
  3. ipratropium/albuterol 0.5/3 mg inh solution [Concomitant]
  4. PREDNISONE [Concomitant]
     Active Substance: PREDNISONE
  5. senna 8.6 mg tablet [Concomitant]
  6. B-D pen needle 31 G * 8 mm [Concomitant]
  7. calcium acetate 667 mg capsule [Concomitant]
  8. ALCOHOL PREP PADS [Concomitant]
     Active Substance: ISOPROPYL ALCOHOL
  9. midodrine 5 mg tablet [Concomitant]
  10. OMEPRAZOLE [Concomitant]
     Active Substance: OMEPRAZOLE
  11. metoprolol ER succinate 25 mg tablet [Concomitant]
  12. metoclopramide 5 mg tablet [Concomitant]
  13. QUETIAPINE FUMARATE [Concomitant]
     Active Substance: QUETIAPINE FUMARATE
  14. Rena-Vite Rx tablet [Concomitant]
  15. ROSUVASTATIN [Concomitant]
     Active Substance: ROSUVASTATIN
  16. melatonin 5 mg tablet [Concomitant]
  17. sertraline 50 mg tablet [Concomitant]
  18. Lantus solostar pen injection [Concomitant]
  19. sulfamethoxazole/trimethoprim 800/160 mg tablet [Concomitant]
  20. GABAPENTIN [Concomitant]
     Active Substance: GABAPENTIN
  21. digoxin 0.125 mg tablet [Concomitant]
  22. POLYETHYLENE GLYCOL 3350 [Concomitant]
     Active Substance: POLYETHYLENE GLYCOL 3350

REACTIONS (1)
  - General physical health deterioration [None]

NARRATIVE: CASE EVENT DATE: 20250617
